FAERS Safety Report 16409296 (Version 1)
Quarter: 2019Q2

REPORT INFORMATION
  Report Type: Spontaneous
  Country: US (occurrence: US)
  Receive Date: 20190502
  Receipt Date: 20190502
  Transmission Date: 20190711
  Serious: No
  Sender: FDA-Public Use
  Company Number: None

PATIENT
  Age: 71 Year
  Sex: Female
  Weight: 74.84 kg

DRUGS (9)
  1. VITAMIN D [Concomitant]
     Active Substance: VITAMIN D NOS
  2. LISINOPRIL. [Concomitant]
     Active Substance: LISINOPRIL
  3. HYDROCHLOROTHIZIDE [Concomitant]
     Active Substance: HYDROCHLOROTHIAZIDE
  4. FISH OIL [Concomitant]
     Active Substance: FISH OIL
  5. RED YEAST RICE [Concomitant]
     Active Substance: DIETARY SUPPLEMENT
  6. PROLIA [Suspect]
     Active Substance: DENOSUMAB
  7. GABAPENTIN. [Suspect]
     Active Substance: GABAPENTIN
  8. NIACIN. [Concomitant]
     Active Substance: NIACIN
  9. CALCIUM [Concomitant]
     Active Substance: CALCIUM

REACTIONS (5)
  - Balance disorder [None]
  - Arthralgia [None]
  - Myalgia [None]
  - Walking aid user [None]
  - Back pain [None]

NARRATIVE: CASE EVENT DATE: 20190213
